FAERS Safety Report 19812557 (Version 4)
Quarter: 2021Q4

REPORT INFORMATION
  Report Type: Spontaneous
  Country: CN (occurrence: CN)
  Receive Date: 20210910
  Receipt Date: 20211018
  Transmission Date: 20220303
  Serious: Yes (Other)
  Sender: FDA-Public Use
  Company Number: CN-SA-SAC20210909000954

PATIENT
  Age: 34 Year
  Sex: Male

DRUGS (4)
  1. ELOXATIN [Suspect]
     Active Substance: OXALIPLATIN
     Indication: Hepatic perfusion disorder
     Dosage: 165 MG OF ELOXATIN (OXALIPLATIN FOR INJECTION) WAS DISSOLVED IN 250 ML OF 5% GLUCOSE SOLUTION
     Dates: start: 20210728
  2. FLUOROURACIL [Suspect]
     Active Substance: FLUOROURACIL
     Indication: Hepatic perfusion disorder
     Dosage: 44 HOURS OF PERFUSION AFTER 2 HOURS OF PERFUSION
     Dates: start: 20210728
  3. LENVIMA [Concomitant]
     Active Substance: LENVATINIB
  4. DEXTROSE [Concomitant]
     Active Substance: DEXTROSE
     Indication: Medication dilution
     Dosage: 250 ML

REACTIONS (7)
  - Myelosuppression [Unknown]
  - Suspected product quality issue [Unknown]
  - Abdominal pain [Unknown]
  - Platelet count decreased [Unknown]
  - White blood cell count decreased [Unknown]
  - Pyrexia [Unknown]
  - Off label use [Unknown]

NARRATIVE: CASE EVENT DATE: 20210728
